FAERS Safety Report 8958394 (Version 1)
Quarter: 2012Q4

REPORT INFORMATION
  Report Type: 
  Country: ZA (occurrence: ZA)
  Receive Date: 20121210
  Receipt Date: 20121210
  Transmission Date: 20130627
  Serious: Yes (Other)
  Sender: FDA-Public Use
  Company Number: ZA-GLAXOSMITHKLINE-B0849487A

PATIENT
  Age: 47 Year
  Sex: Female
  Weight: 54.5 kg

DRUGS (8)
  1. MALARONE [Suspect]
     Indication: MALARIA PROPHYLAXIS
     Route: 065
     Dates: start: 20121114
  2. ESCITALOPRAM [Concomitant]
     Indication: DEPRESSION
     Dosage: 20MG per day
  3. RAMIPRIL [Concomitant]
  4. CETIRIZINE [Concomitant]
     Indication: HYPERSENSITIVITY
     Dosage: 10MG per day
  5. EZETROL [Concomitant]
     Indication: BLOOD CHOLESTEROL
     Dosage: 4MG per day
  6. AVAMYS [Concomitant]
  7. CONCOR [Concomitant]
  8. ECOTRIN [Concomitant]

REACTIONS (7)
  - Stevens-Johnson syndrome [Recovering/Resolving]
  - Rash erythematous [Recovering/Resolving]
  - Blister [Recovering/Resolving]
  - Mouth ulceration [Recovered/Resolved]
  - Skin burning sensation [Unknown]
  - Skin lesion [Unknown]
  - Oral disorder [Unknown]
